FAERS Safety Report 16905902 (Version 2)
Quarter: 2019Q4

REPORT INFORMATION
  Report Type: Spontaneous
  Country: FR (occurrence: FR)
  Receive Date: 20191010
  Receipt Date: 20191022
  Transmission Date: 20200122
  Serious: No
  Sender: FDA-Public Use
  Company Number: FR-ABBVIE-19K-056-2958845-00

PATIENT
  Sex: Male

DRUGS (3)
  1. HUMIRA [Suspect]
     Active Substance: ADALIMUMAB
     Route: 058
  2. HUMIRA [Suspect]
     Active Substance: ADALIMUMAB
     Indication: CROHN^S DISEASE
     Route: 058
  3. HUMIRA [Suspect]
     Active Substance: ADALIMUMAB
     Route: 058

REACTIONS (6)
  - Dyspnoea [Recovering/Resolving]
  - Product storage error [Unknown]
  - Chest discomfort [Recovering/Resolving]
  - Product administration error [Unknown]
  - Mobility decreased [Recovering/Resolving]
  - Back pain [Recovering/Resolving]
